FAERS Safety Report 6153604-2 (Version None)
Quarter: 2009Q2

REPORT INFORMATION
  Report Type: 
  Country: None (occurrence: None)
  Receive Date: 20090413
  Receipt Date: 20090401
  Transmission Date: 20091009
  Serious: Yes (Other)
  Sender: FDA-Public Use
  Company Number: US-PFIZER INC-2009193003

PATIENT
  Sex: Female
  Weight: 72.562 kg

DRUGS (2)
  1. ZOLOFT [Suspect]
     Dosage: UNK
     Dates: start: 20071001, end: 20080101
  2. ALL OTHER THERAPEUTIC PRODUCTS [Concomitant]

REACTIONS (5)
  - ANORGASMIA [None]
  - LIBIDO INCREASED [None]
  - SEXUAL ABUSE [None]
  - SEXUAL DYSFUNCTION [None]
  - SUICIDAL IDEATION [None]
